FAERS Safety Report 26086929 (Version 1)
Quarter: 2025Q4

REPORT INFORMATION
  Report Type: Spontaneous
  Country: US (occurrence: None)
  Receive Date: 20251124
  Receipt Date: 20251124
  Transmission Date: 20260118
  Serious: Yes (Disabling, Other)
  Sender: FDA-CTU
  Company Number: None

PATIENT
  Age: 80 Year
  Sex: Female
  Weight: 45.9 kg

DRUGS (11)
  1. RECLAST [Suspect]
     Active Substance: ZOLEDRONIC ACID
     Indication: Osteoporosis
     Dosage: OTHER FREQUENCY : 1;?
     Route: 042
  2. metphormin hcl 500mg qd [Concomitant]
  3. triamterene hctz37.5 mg 1/2 qt [Concomitant]
  4. rosuvastatincalcium 20mg 1qd [Concomitant]
  5. HERBALS\TURMERIC [Concomitant]
     Active Substance: HERBALS\TURMERIC
  6. MAGNESIUM [Concomitant]
     Active Substance: MAGNESIUM
  7. BIOTIN [Concomitant]
     Active Substance: BIOTIN
  8. c [Concomitant]
  9. OCUVITE [Concomitant]
     Active Substance: VITAMINS
  10. CALCIUM CITRATE [Concomitant]
     Active Substance: CALCIUM CITRATE
  11. OMEGA-3 ACIDS [Concomitant]
     Active Substance: OMEGA-3 FATTY ACIDS

REACTIONS (10)
  - Decreased activity [None]
  - Arthralgia [None]
  - Myalgia [None]
  - Balance disorder [None]
  - Decreased appetite [None]
  - Influenza like illness [None]
  - Brain fog [None]
  - C-reactive protein increased [None]
  - Red blood cell count decreased [None]
  - Haemoglobin decreased [None]

NARRATIVE: CASE EVENT DATE: 20251031
